FAERS Safety Report 9854158 (Version 1)
Quarter: 2014Q1

REPORT INFORMATION
  Report Type: Report from Study
  Country: US (occurrence: US)
  Receive Date: 20140130
  Receipt Date: 20140130
  Transmission Date: 20141002
  Serious: Yes (Hospitalization)
  Sender: FDA-Public Use
  Company Number: US-ROCHE-1338199

PATIENT
  Age: 78 Year
  Sex: Female
  Weight: 53.8 kg

DRUGS (23)
  1. BEVACIZUMAB [Suspect]
     Indication: SMALL INTESTINE ADENOCARCINOMA
     Dosage: LAST DOSE PRIOR TO ABDOMINAL PAIN, PANCREATITIS AND COLITIS ON 02/JAN/2014 AT A DOSE OF 7.5 MG/M2 (C
     Route: 042
     Dates: start: 20131017
  2. CAPECITABINE [Suspect]
     Indication: SMALL INTESTINE ADENOCARCINOMA
     Dosage: DIVIDED IN BID FOR 14 DAYES AND 7 DAYES ON.?LAST DOSE PRIOR TO ABDOMINAL PAIN, PANCREATITIS AND COLI
     Route: 048
     Dates: start: 20131017, end: 20131023
  3. OXALIPLATIN [Suspect]
     Indication: SMALL INTESTINE ADENOCARCINOMA
     Dosage: LAST DOSE PRIOR TO ABDOMINAL PAIN, PANCREATITIS AND COLITIS ON 02/JAN/2014 AT A DOSE OF 97.5 MG/M2
     Route: 042
  4. AMBIEN [Concomitant]
     Indication: INSOMNIA
     Dosage: 5-10 MG
     Route: 048
     Dates: start: 20110101
  5. COMBIVENT [Concomitant]
     Indication: CHRONIC OBSTRUCTIVE PULMONARY DISEASE
     Dosage: DOSE-1 PUFF, ROUTE-INHALATION
     Route: 065
     Dates: start: 19900101
  6. QVAR [Concomitant]
     Indication: CHRONIC OBSTRUCTIVE PULMONARY DISEASE
     Dosage: ROUTE-INHALATION
     Route: 065
  7. MILK OF MAGNESIA [Concomitant]
     Indication: CONSTIPATION
     Route: 048
     Dates: start: 20130101
  8. DEXAMETHASONE [Concomitant]
     Route: 042
     Dates: start: 20131017
  9. DEXAMETHASONE [Concomitant]
     Dosage: ON D2-D4 FOR FATIGUE AND ANOREXIA
     Route: 048
     Dates: start: 20131112
  10. ONDANSETRON [Concomitant]
     Route: 042
     Dates: start: 20131017
  11. CALCIUM GLUCONATE [Concomitant]
     Route: 042
     Dates: start: 20131017
  12. MAGNESIUM SULFATE [Concomitant]
     Route: 042
     Dates: start: 20131017
  13. IMODIUM [Concomitant]
     Indication: DIARRHOEA
     Route: 048
     Dates: start: 20131017
  14. ZOFRAN [Concomitant]
     Indication: DIARRHOEA
     Route: 048
  15. COMPAZINE [Concomitant]
     Indication: DIARRHOEA
     Route: 048
     Dates: start: 20131017
  16. SENNOSIDES [Concomitant]
     Indication: CONSTIPATION
     Dosage: 2-4 TABS
     Route: 048
     Dates: start: 20131023
  17. EMLA [Concomitant]
     Dosage: ROUTE:APPL
     Route: 065
     Dates: start: 20131106
  18. CARAFATE [Concomitant]
     Indication: DYSPEPSIA
     Route: 048
     Dates: start: 20130101
  19. LISINOPRIL [Concomitant]
     Indication: HYPERTENSION
     Route: 048
     Dates: start: 20131121
  20. BENADRYL (UNITED STATES) [Concomitant]
     Route: 042
     Dates: start: 20131112
  21. MIRALAX [Concomitant]
     Indication: CONSTIPATION
     Route: 048
     Dates: start: 20130101
  22. AUGMENTIN [Concomitant]
  23. BACTRIM [Concomitant]
     Route: 065

REACTIONS (3)
  - Abdominal pain [Unknown]
  - Pancreatitis [Unknown]
  - Colitis [Unknown]
